FAERS Safety Report 25538160 (Version 1)
Quarter: 2025Q3

REPORT INFORMATION
  Report Type: Report from Study
  Country: US (occurrence: US)
  Receive Date: 20250710
  Receipt Date: 20250710
  Transmission Date: 20251020
  Serious: Yes (Other)
  Sender: SUNOVION
  Company Number: US-SUMITOMO PHARMA SWITZERLAND GMBH-2025SPA007735

PATIENT

DRUGS (4)
  1. ORGOVYX [Suspect]
     Active Substance: RELUGOLIX
     Indication: Prostate cancer
     Route: 048
     Dates: start: 20250606
  2. LOSARTAN [Concomitant]
     Active Substance: LOSARTAN
     Route: 065
  3. AMLODIPINE [Concomitant]
     Active Substance: AMLODIPINE BESYLATE
     Route: 065
  4. XTANDI [Concomitant]
     Active Substance: ENZALUTAMIDE
     Route: 065

REACTIONS (3)
  - Lower respiratory tract infection [Unknown]
  - Pharyngitis [Unknown]
  - Incorrect dose administered [Unknown]
